FAERS Safety Report 7299786-0 (Version None)
Quarter: 2011Q1

REPORT INFORMATION
  Report Type: 
  Country: None (occurrence: None)
  Receive Date: 20110217
  Receipt Date: 20110208
  Transmission Date: 20110831
  Serious: Yes (Hospitalization)
  Sender: FDA-Public Use
  Company Number: SE-ASTRAZENECA-2011SE07261

PATIENT
  Age: 85 Year
  Sex: Female

DRUGS (8)
  1. DIGOXIN [Concomitant]
  2. NEORECORMON [Concomitant]
  3. OMEPRAZOLE [Concomitant]
  4. ETALPHA [Concomitant]
  5. ACETAMINOPHEN [Concomitant]
     Route: 048
  6. WARAN [Concomitant]
     Route: 048
  7. SELOKEN [Suspect]
     Indication: ESSENTIAL HYPERTENSION
     Dosage: DAILY
     Route: 048
     Dates: end: 20101001
  8. ATACAND [Suspect]
     Indication: ESSENTIAL HYPERTENSION
     Dosage: DAILY
     Route: 048
     Dates: end: 20101001

REACTIONS (1)
  - SYNCOPE [None]
